FAERS Safety Report 10059365 (Version 2)
Quarter: 2014Q2

REPORT INFORMATION
  Report Type: Spontaneous
  Country: ES (occurrence: ES)
  Receive Date: 20140404
  Receipt Date: 20140527
  Transmission Date: 20141212
  Serious: Yes (Hospitalization, Other)
  Sender: FDA-Public Use
  Company Number: ES-JNJFOC-20140317127

PATIENT
  Age: 34 Year
  Sex: Male

DRUGS (7)
  1. RISPERDAL [Suspect]
     Indication: SCHIZOPHRENIA, PARANOID TYPE
     Dosage: UPTO 9 MG PER DAY
     Route: 065
  2. RISPERDAL CONSTA [Suspect]
     Indication: SCHIZOPHRENIA, PARANOID TYPE
     Route: 030
     Dates: start: 201209
  3. RISPERDAL CONSTA [Suspect]
     Indication: SCHIZOPHRENIA, PARANOID TYPE
     Dosage: UPTO 100 MG EVERY 14 DAYS
     Route: 030
  4. HALOPERIDOL [Suspect]
     Indication: SCHIZOPHRENIA, PARANOID TYPE
     Dosage: UPTO 4 MG PER DAY
     Route: 065
  5. HALOPERIDOL [Suspect]
     Indication: SCHIZOPHRENIA, PARANOID TYPE
     Route: 065
  6. BIPERIDEN [Suspect]
     Indication: PRODUCT USED FOR UNKNOWN INDICATION
     Dosage: 1-1-0
     Route: 065
     Dates: start: 201209
  7. CLOZAPINE [Suspect]
     Indication: PRODUCT USED FOR UNKNOWN INDICATION
     Route: 065
     Dates: start: 201209

REACTIONS (7)
  - Akathisia [Unknown]
  - Diabetes mellitus [Unknown]
  - Hyperprolactinaemia [Unknown]
  - Sedation [Unknown]
  - Salivary hypersecretion [Unknown]
  - Schizophrenia [Unknown]
  - Weight increased [Unknown]
